FAERS Safety Report 20628525 (Version 10)
Quarter: 2023Q2

REPORT INFORMATION
  Report Type: Spontaneous
  Country: US (occurrence: US)
  Receive Date: 20220323
  Receipt Date: 20230410
  Transmission Date: 20230722
  Serious: Yes (Other)
  Sender: FDA-Public Use
  Company Number: US-PFIZER INC-202101690792

PATIENT
  Age: 65 Year
  Sex: Female
  Weight: 117.91 kg

DRUGS (4)
  1. IBRANCE [Suspect]
     Active Substance: PALBOCICLIB
     Indication: Breast cancer metastatic
     Dosage: 125 MG, DAILY
     Dates: start: 20211203
  2. IBRANCE [Suspect]
     Active Substance: PALBOCICLIB
     Indication: Bone cancer
  3. ANASTROZOLE [Concomitant]
     Active Substance: ANASTROZOLE
     Dosage: 1 MG
     Dates: start: 202110
  4. ARIMIDEX [Concomitant]
     Active Substance: ANASTROZOLE
     Dosage: 1 MG
     Dates: start: 202110

REACTIONS (18)
  - Pelvic fracture [Not Recovered/Not Resolved]
  - Acne [Unknown]
  - Neoplasm progression [Unknown]
  - Back pain [Unknown]
  - Pain in extremity [Unknown]
  - Crying [Unknown]
  - Peripheral swelling [Unknown]
  - Lymphoedema [Unknown]
  - Bone disorder [Unknown]
  - Lymphadenectomy [Unknown]
  - Therapy interrupted [Unknown]
  - Full blood count decreased [Unknown]
  - Discomfort [Unknown]
  - Gait inability [Unknown]
  - Arthralgia [Unknown]
  - Hypoacusis [Unknown]
  - Illness [Unknown]
  - Influenza [Recovered/Resolved]
